FAERS Safety Report 5005316-6 (Version None)
Quarter: 2006Q2

REPORT INFORMATION
  Report Type: 
  Country: None (occurrence: None)
  Receive Date: 20060515
  Receipt Date: 20060504
  Transmission Date: 20061013
  Serious: Yes (Other)
  Sender: FDA-Public Use
  Company Number: 200611450BCC

PATIENT
  Age: 83 Year
  Sex: Female
  Weight: 68.4932 kg

DRUGS (12)
  1. ALEVE [Suspect]
     Indication: BURSITIS
     Dosage: 220 MG, PRN, ORAL
     Route: 048
  2. ALEVE [Suspect]
     Indication: PAIN
     Dosage: 220 MG, PRN, ORAL
     Route: 048
  3. CORTISONE ACETATE TAB [Suspect]
     Dates: start: 20060403
  4. CALAN [Concomitant]
  5. CARDURA [Concomitant]
  6. CALCIUM GLUCONATE [Concomitant]
  7. COSOPT [Concomitant]
  8. ALPHAGAN [Concomitant]
  9. XANAX [Concomitant]
  10. FISH OIL [Concomitant]
  11. SPRING VALEY MULTIVITAMIN [Concomitant]
  12. PREDNISONE [Concomitant]

REACTIONS (1)
  - GLAUCOMA [None]
